FAERS Safety Report 9676169 (Version 1)
Quarter: 2013Q4

REPORT INFORMATION
  Report Type: Report from Study
  Country: CO (occurrence: CO)
  Receive Date: 20131107
  Receipt Date: 20131107
  Transmission Date: 20140711
  Serious: Yes (Other)
  Sender: FDA-Public Use
  Company Number: CO-ROCHE-1300252

PATIENT
  Age: 46 Year
  Sex: Female

DRUGS (6)
  1. RANIBIZUMAB [Suspect]
     Indication: MACULAR DEGENERATION
     Route: 050
     Dates: start: 201302
  2. METFORMIN [Concomitant]
  3. ENALAPRIL [Concomitant]
  4. INSULIN [Concomitant]
  5. ATORVASTATIN [Concomitant]
  6. ASA [Concomitant]

REACTIONS (2)
  - Coronary artery disease [Recovering/Resolving]
  - Cardiac disorder [Unknown]
